FAERS Safety Report 24594391 (Version 2)
Quarter: 2024Q4

REPORT INFORMATION
  Report Type: Spontaneous
  Country: US (occurrence: US)
  Receive Date: 20241108
  Receipt Date: 20241111
  Transmission Date: 20250115
  Serious: No
  Sender: ABBVIE
  Company Number: US-ABBVIE-5990425

PATIENT

DRUGS (1)
  1. SYNTHROID [Suspect]
     Active Substance: LEVOTHYROXINE SODIUM
     Indication: Product used for unknown indication
     Dosage: FORM STRENGTH: 200 MICROGRAM
     Route: 048

REACTIONS (8)
  - Chest pain [Unknown]
  - Dyspnoea [Unknown]
  - Back pain [Unknown]
  - Fatigue [Unknown]
  - Generalised oedema [Unknown]
  - Yawning [Unknown]
  - Drug ineffective [Unknown]
  - Product coating issue [Unknown]
